FAERS Safety Report 11551033 (Version 2)
Quarter: 2015Q4

REPORT INFORMATION
  Report Type: Spontaneous
  Country: US (occurrence: US)
  Receive Date: 20150925
  Receipt Date: 20151106
  Transmission Date: 20160304
  Serious: Yes (Hospitalization, Other)
  Sender: FDA-Public Use
  Company Number: US-ABBVIE-15K-163-1465783-00

PATIENT
  Age: 29 Year
  Sex: Male
  Weight: 68.1 kg

DRUGS (16)
  1. PREDNISONE. [Concomitant]
     Active Substance: PREDNISONE
     Dosage: 1 REFILL
     Route: 048
  2. OXYCODONE [Concomitant]
     Active Substance: OXYCODONE
     Indication: PRODUCT USED FOR UNKNOWN INDICATION
     Dosage: 5-10 MG, AS REQUIRED
     Route: 048
  3. ZOFRAN [Concomitant]
     Active Substance: ONDANSETRON HYDROCHLORIDE
     Indication: PRODUCT USED FOR UNKNOWN INDICATION
     Dosage: AS REQUIRED
     Route: 042
  4. PREDNISONE. [Concomitant]
     Active Substance: PREDNISONE
     Route: 048
  5. PREDNISONE. [Concomitant]
     Active Substance: PREDNISONE
     Indication: PRODUCT USED FOR UNKNOWN INDICATION
     Dosage: FOR 5 DAYS
     Route: 048
     Dates: start: 20150916
  6. PREDNISONE. [Concomitant]
     Active Substance: PREDNISONE
     Dosage: FOR 5 DAYS
     Route: 048
     Dates: start: 20150825
  7. HUMIRA [Suspect]
     Active Substance: ADALIMUMAB
     Dosage: THIRD DOSE
     Route: 058
     Dates: start: 20150824
  8. ALEVE [Suspect]
     Active Substance: NAPROXEN SODIUM
     Indication: PRODUCT USED FOR UNKNOWN INDICATION
     Route: 065
  9. HUMIRA [Suspect]
     Active Substance: ADALIMUMAB
     Dosage: LOADING DOSE
     Route: 058
     Dates: start: 20150727, end: 20150727
  10. FERROUS SULFATE [Concomitant]
     Active Substance: FERROUS SULFATE\FERROUS SULFATE, DRIED
     Indication: PRODUCT USED FOR UNKNOWN INDICATION
     Dosage: TIDWM
     Route: 048
  11. HUMIRA [Suspect]
     Active Substance: ADALIMUMAB
     Indication: COLITIS ULCERATIVE
     Dosage: TOOK 3 DOSES
     Route: 058
  12. COUMADIN [Suspect]
     Active Substance: WARFARIN SODIUM
     Indication: PRODUCT USED FOR UNKNOWN INDICATION
     Route: 048
  13. PREDNISONE. [Concomitant]
     Active Substance: PREDNISONE
     Route: 048
  14. ASACOL HD [Concomitant]
     Active Substance: MESALAMINE
     Indication: PRODUCT USED FOR UNKNOWN INDICATION
     Dosage: 12 REFILLS DELAYED RELEASE
     Route: 048
  15. HUMIRA [Suspect]
     Active Substance: ADALIMUMAB
     Dosage: SECOND DOSE
     Route: 058
     Dates: start: 20150810, end: 20150810
  16. DILAUDID [Concomitant]
     Active Substance: HYDROMORPHONE HYDROCHLORIDE
     Indication: PRODUCT USED FOR UNKNOWN INDICATION
     Dosage: AS REQUIRED, 0.5 MG,0.5 ML
     Route: 042

REACTIONS (46)
  - Incorrect dose administered [Unknown]
  - Deep vein thrombosis [Unknown]
  - Debridement [Recovering/Resolving]
  - Diarrhoea [Not Recovered/Not Resolved]
  - Skin exfoliation [Unknown]
  - Mean cell volume decreased [Unknown]
  - Neutrophil count increased [Unknown]
  - Blood glucose increased [Unknown]
  - Transferrin saturation decreased [Unknown]
  - Activated partial thromboplastin time prolonged [Unknown]
  - Leukocytosis [Unknown]
  - Hyponatraemia [Unknown]
  - Carbon dioxide decreased [Unknown]
  - Hypersensitivity vasculitis [Recovering/Resolving]
  - Weight decreased [Not Recovered/Not Resolved]
  - Drug hypersensitivity [Unknown]
  - Red cell distribution width increased [Unknown]
  - Blood albumin decreased [Unknown]
  - Monocyte count increased [Unknown]
  - Mean cell haemoglobin concentration decreased [Unknown]
  - Eschar [Not Recovered/Not Resolved]
  - Haematochezia [Unknown]
  - Haemoglobin decreased [Unknown]
  - Alanine aminotransferase decreased [Unknown]
  - Protein C decreased [Unknown]
  - Haemorrhagic disorder [Unknown]
  - Purpura [Unknown]
  - Tachycardia [Unknown]
  - Red blood cell count decreased [Unknown]
  - Mean platelet volume decreased [Unknown]
  - Blood phosphorus increased [Unknown]
  - Purpura fulminans [Unknown]
  - Lethargy [Unknown]
  - Sunburn [Unknown]
  - Insomnia [Unknown]
  - Rash [Unknown]
  - Back pain [Unknown]
  - Haematocrit decreased [Unknown]
  - Lymphocyte count increased [Unknown]
  - Mean cell haemoglobin decreased [Unknown]
  - Pneumonitis [Unknown]
  - Platelet count increased [Unknown]
  - Hyperhidrosis [Not Recovered/Not Resolved]
  - Gastrointestinal haemorrhage [Unknown]
  - Blood calcium decreased [Unknown]
  - Vitamin B12 increased [Unknown]

NARRATIVE: CASE EVENT DATE: 2015
